FAERS Safety Report 24754925 (Version 1)
Quarter: 2024Q4

REPORT INFORMATION
  Report Type: Spontaneous
  Country: BE (occurrence: BE)
  Receive Date: 20241219
  Receipt Date: 20241219
  Transmission Date: 20250114
  Serious: Yes (Other)
  Sender: SAMSUNG BIOEPIS
  Company Number: BE-SAMSUNG BIOEPIS-SB-2023-31314

PATIENT
  Age: 66 Year
  Sex: Female

DRUGS (4)
  1. ADALIMUMAB [Suspect]
     Active Substance: ADALIMUMAB
     Indication: Granuloma annulare
     Dosage: 40 MILLIGRAM, Q2W
     Route: 065
  2. BARICITINIB [Suspect]
     Active Substance: BARICITINIB
     Indication: Granuloma annulare
     Dosage: UNKNOWN
     Route: 065
  3. METHOTREXATE [Concomitant]
     Active Substance: METHOTREXATE
     Indication: Granuloma annulare
     Dosage: 15 MILLIGRAM, QWK
     Route: 065
  4. CYCLOSPORINE [Concomitant]
     Active Substance: CYCLOSPORINE
     Indication: Granuloma annulare
     Dosage: 3 MILLIGRAM, QD
     Route: 065

REACTIONS (5)
  - Granuloma annulare [Recovered/Resolved]
  - Herpes zoster [Recovered/Resolved]
  - Drug ineffective for unapproved indication [Unknown]
  - Off label use [Unknown]
  - Drug effective for unapproved indication [Unknown]
